FAERS Safety Report 5726473-X (Version None)
Quarter: 2008Q2

REPORT INFORMATION
  Report Type: 
  Country: None (occurrence: None)
  Receive Date: 20080502
  Receipt Date: 20080418
  Transmission Date: 20081010
  Serious: Yes (Death, Hospitalization)
  Sender: FDA-Public Use
  Company Number: CH-GENENTECH-259218

PATIENT
  Sex: Female
  Weight: 41.4 kg

DRUGS (12)
  1. BEVACIZUMAB [Suspect]
     Indication: BREAST CANCER METASTATIC
     Dosage: 620 MG, Q3W
     Route: 042
     Dates: start: 20071207
  2. VOLTAREN [Concomitant]
     Indication: DRUG USE FOR UNKNOWN INDICATION
  3. ACETAMINOPHEN [Concomitant]
     Indication: DRUG USE FOR UNKNOWN INDICATION
  4. MORPHINE [Concomitant]
     Indication: DRUG USE FOR UNKNOWN INDICATION
  5. CONCOMITANT DRUG [Concomitant]
     Indication: DRUG USE FOR UNKNOWN INDICATION
  6. PEVARYL [Concomitant]
     Indication: DRUG USE FOR UNKNOWN INDICATION
  7. STILNOX [Concomitant]
     Indication: DRUG USE FOR UNKNOWN INDICATION
  8. RESYL PLUS [Concomitant]
     Indication: DRUG USE FOR UNKNOWN INDICATION
  9. FORTECORTIN [Concomitant]
     Indication: DRUG USE FOR UNKNOWN INDICATION
  10. PRIMPERAN TAB [Concomitant]
     Indication: DRUG USE FOR UNKNOWN INDICATION
  11. LORAZEPAM [Concomitant]
     Indication: DRUG USE FOR UNKNOWN INDICATION
  12. ZOFRAN [Concomitant]
     Indication: DRUG USE FOR UNKNOWN INDICATION

REACTIONS (1)
  - GASTROINTESTINAL PERFORATION [None]
